FAERS Safety Report 7549497-9 (Version None)
Quarter: 2011Q2

REPORT INFORMATION
  Report Type: 
  Country: None (occurrence: None)
  Receive Date: 20110615
  Receipt Date: 20110606
  Transmission Date: 20111010
  Serious: Yes (Hospitalization)
  Sender: FDA-Public Use
  Company Number: IT-ASTRAZENECA-2011SE34095

PATIENT
  Age: 19 Year
  Sex: Male

DRUGS (6)
  1. TACHYPIRINA [Concomitant]
     Indication: CHRONIC SINUSITIS
     Route: 048
  2. SEROQUEL [Suspect]
     Indication: SUICIDE ATTEMPT
     Route: 048
     Dates: start: 20110514, end: 20110514
  3. ASPIRIN [Suspect]
     Indication: SUICIDE ATTEMPT
     Route: 048
     Dates: start: 20110514, end: 20110514
  4. METHADONE HCL [Concomitant]
  5. DELORAZEPAM [Suspect]
     Indication: SUICIDE ATTEMPT
     Route: 048
     Dates: start: 20110514, end: 20110514
  6. AUGMENTIN '125' [Suspect]
     Indication: SUICIDE ATTEMPT
     Dosage: 875 MG (AMOXICILLIN) + 125 MG (CLAVULANIC ACID) 2 GRAMS
     Route: 048
     Dates: start: 20110514, end: 20110514

REACTIONS (5)
  - INTENTIONAL OVERDOSE [None]
  - SUICIDE ATTEMPT [None]
  - SOPOR [None]
  - BRADYPHRENIA [None]
  - BRADYKINESIA [None]
